FAERS Safety Report 5447433-2 (Version None)
Quarter: 2007Q3

REPORT INFORMATION
  Report Type: 
  Country: None (occurrence: None)
  Receive Date: 20070905
  Receipt Date: 20070821
  Transmission Date: 20080115
  Serious: Yes (Death, Congenital Anomaly, Other)
  Sender: FDA-Public Use
  Company Number: 2007VX002172

PATIENT

DRUGS (4)
  1. FLURAZEPAM HYDROCHLORIDE [Suspect]
     Indication: SLEEP DISORDER
     Dosage: 1 DF; QW; TRPL
     Route: 064
     Dates: end: 20070410
  2. CITALOPRAM HYDROBROMIDE [Suspect]
     Dosage: 20 MG; QD; TRPL
     Route: 064
  3. TRUXAL (CHLORPROTHIXENE HYDROCHLORIDE) [Suspect]
     Dosage: 15 MG; QID; TRPL
     Route: 064
  4. ZOLPIDEM TARTRATE [Suspect]
     Indication: SLEEP DISORDER
     Dosage: 10 MG; QD; TRPL
     Route: 064
     Dates: start: 20070410, end: 20070629

REACTIONS (16)
  - ABORTION INDUCED [None]
  - CONGENITAL SPINAL FUSION [None]
  - DRUG EXPOSURE DURING PREGNANCY [None]
  - FOETAL DISORDER [None]
  - FOETAL MOVEMENTS DECREASED [None]
  - HEMIVERTEBRA [None]
  - LIMB MALFORMATION [None]
  - MOBILITY DECREASED [None]
  - MULTIPLE CONGENITAL ABNORMALITIES [None]
  - PECTUS EXCAVATUM [None]
  - PTERYGIUM [None]
  - RETROGNATHIA [None]
  - SCOLIOSIS [None]
  - SKIN OEDEMA [None]
  - SPINAL DEFORMITY [None]
  - ULTRASOUND ANTENATAL SCREEN ABNORMAL [None]
